FAERS Safety Report 11830464 (Version 4)
Quarter: 2015Q4

REPORT INFORMATION
  Report Type: Spontaneous
  Country: US (occurrence: US)
  Receive Date: 20151214
  Receipt Date: 20151222
  Transmission Date: 20160305
  Serious: Yes (Hospitalization, Other)
  Sender: FDA-Public Use
  Company Number: US-JNJFOC-20151122703

PATIENT
  Age: 79 Year
  Sex: Female
  Weight: 70.31 kg

DRUGS (3)
  1. NUCYNTA [Suspect]
     Active Substance: TAPENTADOL HYDROCHLORIDE
     Indication: PAIN
     Route: 048
  2. METAXALONE. [Concomitant]
     Active Substance: METAXALONE
     Indication: MUSCLE RELAXANT THERAPY
     Route: 048
  3. DURAGESIC [Suspect]
     Active Substance: FENTANYL
     Indication: BACK PAIN
     Route: 065

REACTIONS (12)
  - Fall [Recovered/Resolved]
  - Back pain [Not Recovered/Not Resolved]
  - Product quality issue [Unknown]
  - Neuropathy peripheral [Not Recovered/Not Resolved]
  - Gait disturbance [Not Recovered/Not Resolved]
  - Underdose [Unknown]
  - Balance disorder [Recovered/Resolved]
  - Head injury [Recovered/Resolved]
  - Product adhesion issue [Unknown]
  - Pain [Not Recovered/Not Resolved]
  - Limb injury [Recovered/Resolved]
  - Product packaging issue [Unknown]

NARRATIVE: CASE EVENT DATE: 201511
